FAERS Safety Report 4988998-4 (Version None)
Quarter: 2006Q2

REPORT INFORMATION
  Report Type: 
  Country: None (occurrence: None)
  Receive Date: 20060425
  Receipt Date: 20060412
  Transmission Date: 20061013
  Serious: Yes (Other)
  Sender: FDA-Public Use
  Company Number: 2006040313

PATIENT
  Age: 53 Year
  Sex: Female
  Weight: 63.5036 kg

DRUGS (3)
  1. LYRICA [Suspect]
     Indication: ARTHRITIS
     Dosage: 100 MG (50 MG, 2 IN 1 D), ORAL
     Route: 048
     Dates: start: 20060201, end: 20060321
  2. FOSAMAX [Concomitant]
  3. LOVASTATIN [Concomitant]

REACTIONS (5)
  - DRUG ERUPTION [None]
  - RASH ERYTHEMATOUS [None]
  - RASH PRURITIC [None]
  - SCAR [None]
  - SOMNOLENCE [None]
